FAERS Safety Report 20993249 (Version 1)
Quarter: 2022Q2

REPORT INFORMATION
  Report Type: Other
  Country: US (occurrence: None)
  Receive Date: 20220622
  Receipt Date: 20220622
  Transmission Date: 20220721
  Serious: No
  Sender: FDA-Public Use
  Company Number: US-ROCHE-3120691

PATIENT
  Sex: Male

DRUGS (1)
  1. OCREVUS [Suspect]
     Active Substance: OCRELIZUMAB
     Indication: Relapsing multiple sclerosis
     Dosage: LAST DATE OF TREATMENT: 28/JUN/2021, ANTICIPATED DATE OF NEXT TREATMENT: 13/DEC/2021, INFUSE 600MG I
     Route: 042

REACTIONS (1)
  - COVID-19 [Unknown]
